FAERS Safety Report 14536476 (Version 4)
Quarter: 2018Q3

REPORT INFORMATION
  Report Type: Report from Study
  Country: US (occurrence: US)
  Receive Date: 20180215
  Receipt Date: 20180820
  Transmission Date: 20181010
  Serious: Yes (Disabling, Other)
  Sender: FDA-Public Use
  Company Number: PHEH2018US006265

PATIENT
  Age: 54 Year
  Sex: Female

DRUGS (1)
  1. GILENYA [Suspect]
     Active Substance: FINGOLIMOD HYDROCHLORIDE
     Indication: MULTIPLE SCLEROSIS
     Dosage: 0.5 MG, QD
     Route: 048
     Dates: start: 20170412

REACTIONS (9)
  - Abdominal pain upper [Recovered/Resolved]
  - Abdominal distension [Unknown]
  - Lyme disease [Unknown]
  - Diarrhoea [Unknown]
  - Constipation [Unknown]
  - Headache [Recovered/Resolved]
  - Sensory disturbance [Unknown]
  - Band sensation [Not Recovered/Not Resolved]
  - Arthropod bite [Unknown]

NARRATIVE: CASE EVENT DATE: 201801
